FAERS Safety Report 8803580 (Version 1)
Quarter: 2012Q4

REPORT INFORMATION
  Report Type: 
  Country: US (occurrence: US)
  Receive Date: 20120924
  Receipt Date: 20120924
  Transmission Date: 20130627
  Serious: Yes (Death, Hospitalization)
  Sender: FDA-Public Use
  Company Number: US-ALLERGAN-1213003US

PATIENT
  Age: 84 Year
  Sex: Male

DRUGS (6)
  1. SANCTURA XR [Suspect]
     Indication: URINARY FREQUENCY
     Dosage: 60 mg, qd
     Route: 048
     Dates: start: 20120630, end: 20120706
  2. MULTIVITAMIN [Concomitant]
     Indication: SUPPLEMENTATION THERAPY
     Dosage: 1 PO, qd
     Route: 048
  3. ENALAPRIL [Concomitant]
     Indication: HYPERTENSION
     Dosage: 1 PO, qd
     Route: 048
  4. LOVASTATIN [Concomitant]
     Indication: HYPERCHOLESTEROLEMIA
     Dosage: 1 PO, bid
     Route: 048
  5. ZOLOFT [Concomitant]
     Indication: DEPRESSION
     Dosage: 1 PO, qd
     Route: 048
  6. ASPIRIN [Concomitant]
     Indication: PROPHYLAXIS
     Dosage: 2 x 81 mg PO, qd
     Route: 048

REACTIONS (3)
  - Respiratory arrest [Fatal]
  - Abdominal distension [Unknown]
  - Constipation [Unknown]
